FAERS Safety Report 5780458-6 (Version None)
Quarter: 2008Q2

REPORT INFORMATION
  Report Type: 
  Country: None (occurrence: None)
  Receive Date: 20080620
  Receipt Date: 20080614
  Transmission Date: 20081010
  Serious: Yes (Death, Hospitalization, Other)
  Sender: FDA-Public Use
  Company Number: ZA-BAYER-200820640GPV

PATIENT

DRUGS (8)
  1. ALEMTUZUMAB [Suspect]
     Indication: PROPHYLAXIS
     Route: 042
  2. CYCLOPHOSPHAMIDE [Suspect]
  3. CYCLOPHOSPHAMIDE [Suspect]
  4. MELPHALAN [Suspect]
  5. MELPHALAN [Suspect]
  6. BUSULFAN [Suspect]
     Route: 048
  7. VALACYCLOVIR [Concomitant]
     Indication: PROPHYLAXIS
     Dosage: TOTAL DAILY DOSE: 3 G
  8. COTRIM [Concomitant]

REACTIONS (16)
  - ACUTE GRAFT VERSUS HOST DISEASE IN SKIN [None]
  - BACTERIAL SEPSIS [None]
  - CANDIDA SEPSIS [None]
  - CYSTITIS HAEMORRHAGIC [None]
  - CYTOMEGALOVIRUS INFECTION [None]
  - EPSTEIN-BARR VIRUS TEST POSITIVE [None]
  - GRAFT VERSUS HOST DISEASE [None]
  - HEPATIC FAILURE [None]
  - INFECTION [None]
  - INTERSTITIAL LUNG DISEASE [None]
  - OPPORTUNISTIC INFECTION [None]
  - PNEUMONIA [None]
  - POST TRANSPLANT LYMPHOPROLIFERATIVE DISORDER [None]
  - SEPSIS [None]
  - VENOOCCLUSIVE DISEASE [None]
  - VIRAEMIA [None]
